FAERS Safety Report 9243483 (Version 1)
Quarter: 2013Q1

REPORT INFORMATION
  Report Type: Spontaneous
  Country: US (occurrence: None)
  Receive Date: 20121123
  Receipt Date: 20121123
  Transmission Date: 20140127
  Serious: No
  Sender: FDA-Public Use
  Company Number: 358968

PATIENT
  Age: 59 Year
  Sex: Male

DRUGS (2)
  1. VICTOZA [Suspect]
     Indication: GLUCOSE TOLERANCE IMPAIRED
     Route: 058
  2. LASIX /00032601/ (FUROSEMIDE) UNK, UNKUNK [Concomitant]

REACTIONS (3)
  - Swollen tongue [None]
  - Dysphagia [None]
  - Dysphonia [None]
